FAERS Safety Report 21573189 (Version 1)
Quarter: 2022Q4

REPORT INFORMATION
  Report Type: Report from Study
  Country: GR (occurrence: GR)
  Receive Date: 20221109
  Receipt Date: 20221109
  Transmission Date: 20230113
  Serious: Yes (Other)
  Sender: FDA-Public Use
  Company Number: GR-ABBVIE-4193391

PATIENT

DRUGS (1)
  1. VENETOCLAX [Suspect]
     Active Substance: VENETOCLAX
     Indication: Acute myeloid leukaemia
     Route: 048
     Dates: start: 202208

REACTIONS (4)
  - Red blood cell transfusion [Unknown]
  - Aspiration bone marrow [Unknown]
  - Therapeutic product effect incomplete [Unknown]
  - Platelet transfusion [Unknown]
